FAERS Safety Report 9012610 (Version 2)
Quarter: 2013Q4

REPORT INFORMATION
  Report Type: Spontaneous
  Country: DK (occurrence: DK)
  Receive Date: 20130114
  Receipt Date: 20131203
  Transmission Date: 20140711
  Serious: Yes (Other)
  Sender: FDA-Public Use
  Company Number: DK-PFIZER INC-2013013843

PATIENT
  Age: 38 Year
  Sex: Female
  Weight: 73 kg

DRUGS (4)
  1. RELPAX [Suspect]
     Indication: MIGRAINE
     Dosage: 1 TABLET OF 20MG PER DAY FOR MIGRAINE
     Route: 048
     Dates: start: 2003
  2. RELPAX [Interacting]
     Dosage: 40 MG, IN CASE OF MIGRAINE ATTACKS
     Route: 048
  3. CIPRALEX [Interacting]
     Indication: DEPRESSION
     Dosage: 20 MG, 1X/DAY
     Route: 048
     Dates: start: 200601, end: 20120430
  4. CIPRALEX [Interacting]
     Indication: MIGRAINE

REACTIONS (7)
  - Drug interaction [Unknown]
  - Hot flush [Recovered/Resolved]
  - Chest pain [Recovered/Resolved]
  - Dysstasia [Recovered/Resolved]
  - Coordination abnormal [Recovered/Resolved]
  - Malaise [Unknown]
  - Laboratory test abnormal [Unknown]
